FAERS Safety Report 21862870 (Version 1)
Quarter: 2023Q1

REPORT INFORMATION
  Report Type: Spontaneous
  Country: US (occurrence: US)
  Receive Date: 20230114
  Receipt Date: 20230114
  Transmission Date: 20230418
  Serious: No
  Sender: FDA-Public Use
  Company Number: US-drreddys-LIT/USA/22/0159270

PATIENT
  Age: 34 Year
  Sex: Male

DRUGS (18)
  1. METOPROLOL SUCCINATE [Suspect]
     Active Substance: METOPROLOL SUCCINATE
     Indication: Visual snow syndrome
  2. METOPROLOL SUCCINATE [Suspect]
     Active Substance: METOPROLOL SUCCINATE
     Indication: Intracranial hypotension
  3. METOPROLOL SUCCINATE [Suspect]
     Active Substance: METOPROLOL SUCCINATE
     Indication: Headache
  4. AMITRIPTYLINE [Suspect]
     Active Substance: AMITRIPTYLINE
     Indication: Visual snow syndrome
  5. AMITRIPTYLINE [Suspect]
     Active Substance: AMITRIPTYLINE
     Indication: Intracranial hypotension
  6. AMITRIPTYLINE [Suspect]
     Active Substance: AMITRIPTYLINE
     Indication: Headache
  7. ACETAMINOPHEN\BUTABARBITAL\CAFFEINE [Suspect]
     Active Substance: ACETAMINOPHEN\BUTABARBITAL\CAFFEINE
     Indication: Visual snow syndrome
  8. ACETAMINOPHEN\BUTABARBITAL\CAFFEINE [Suspect]
     Active Substance: ACETAMINOPHEN\BUTABARBITAL\CAFFEINE
     Indication: Intracranial hypotension
  9. ACETAMINOPHEN\BUTABARBITAL\CAFFEINE [Suspect]
     Active Substance: ACETAMINOPHEN\BUTABARBITAL\CAFFEINE
     Indication: Headache
  10. GABAPENTIN [Suspect]
     Active Substance: GABAPENTIN
     Indication: Visual snow syndrome
  11. GABAPENTIN [Suspect]
     Active Substance: GABAPENTIN
     Indication: Intracranial hypotension
  12. GABAPENTIN [Suspect]
     Active Substance: GABAPENTIN
     Indication: Headache
  13. LOSARTAN [Suspect]
     Active Substance: LOSARTAN
     Indication: Visual snow syndrome
  14. LOSARTAN [Suspect]
     Active Substance: LOSARTAN
     Indication: Intracranial hypotension
  15. LOSARTAN [Suspect]
     Active Substance: LOSARTAN
     Indication: Headache
  16. MAGNESIUM [Suspect]
     Active Substance: MAGNESIUM
     Indication: Visual snow syndrome
  17. MAGNESIUM [Suspect]
     Active Substance: MAGNESIUM
     Indication: Intracranial hypotension
  18. MAGNESIUM [Suspect]
     Active Substance: MAGNESIUM
     Indication: Headache

REACTIONS (1)
  - Drug ineffective for unapproved indication [Unknown]
